FAERS Safety Report 10646013 (Version 1)
Quarter: 2014Q4

REPORT INFORMATION
  Report Type: Spontaneous
  Country: US (occurrence: None)
  Receive Date: 20141203
  Receipt Date: 20141203
  Transmission Date: 20150529
  Serious: Yes (Hospitalization)
  Sender: FDA-Public Use
  Company Number: 1299793

PATIENT
  Age: 65 Year
  Sex: Female

DRUGS (3)
  1. CARBOPLATIN. [Concomitant]
     Active Substance: CARBOPLATIN
  2. HERCEPTIN [Suspect]
     Active Substance: TRASTUZUMAB
     Indication: BREAST CANCER
     Dosage: LOADING DOSE. ?CYCLE ONE STATED AST 21 DAYS AND CYCLE 2 WAS AS 30 DAYS?
     Dates: start: 20130726
  3. TAXOTERE [Concomitant]
     Active Substance: DOCETAXEL

REACTIONS (6)
  - Neutropenia [None]
  - Nausea [None]
  - Cardiotoxicity [None]
  - Vomiting [None]
  - Thrombocytopenia [None]
  - Chest pain [None]
